FAERS Safety Report 10569645 (Version 3)
Quarter: 2014Q4

REPORT INFORMATION
  Report Type: Spontaneous
  Country: JP (occurrence: JP)
  Receive Date: 20141107
  Receipt Date: 20141111
  Transmission Date: 20150529
  Serious: Yes (Hospitalization, Other)
  Sender: FDA-Public Use
  Company Number: JP-ROCHE-1456745

PATIENT
  Age: 78 Year
  Sex: Female
  Weight: 39 kg

DRUGS (6)
  1. MOHRUS TAPE L [Concomitant]
     Route: 061
     Dates: end: 20141010
  2. PREDNISOLONE. [Suspect]
     Active Substance: PREDNISOLONE
     Indication: RHEUMATOID ARTHRITIS
     Route: 048
     Dates: start: 20110404, end: 20140730
  3. ACTEMRA [Suspect]
     Active Substance: TOCILIZUMAB
     Indication: RHEUMATOID ARTHRITIS
     Route: 041
     Dates: start: 20100910, end: 20140730
  4. VOLTAREN [Suspect]
     Active Substance: DICLOFENAC SODIUM
     Indication: PRODUCT USED FOR UNKNOWN INDICATION
     Route: 054
     Dates: start: 20140413, end: 20140801
  5. PREDNISOLONE. [Suspect]
     Active Substance: PREDNISOLONE
     Indication: RHEUMATOID ARTHRITIS
     Route: 048
     Dates: end: 20101114
  6. PREDNISOLONE. [Suspect]
     Active Substance: PREDNISOLONE
     Indication: RHEUMATOID ARTHRITIS
     Route: 048
     Dates: end: 20110403

REACTIONS (3)
  - Duodenal ulcer [Unknown]
  - Peritonitis [Recovering/Resolving]
  - Duodenal ulcer perforation [Recovering/Resolving]

NARRATIVE: CASE EVENT DATE: 20140519
